FAERS Safety Report 8771598 (Version 1)
Quarter: 2012Q4

REPORT INFORMATION
  Report Type: 
  Country: JP (occurrence: JP)
  Receive Date: 20120905
  Receipt Date: 20120905
  Transmission Date: 20130627
  Serious: Yes (Death)
  Sender: FDA-Public Use
  Company Number: JP-ROCHE-1114713

PATIENT
  Age: 55 Year
  Sex: Female

DRUGS (3)
  1. ROFERON-A [Suspect]
     Indication: RENAL CELL CARCINOMA
     Dosage: 2 week treatment
     Route: 065
  2. ROFERON-A [Suspect]
     Dosage: 28 day cycle, 6 million international unit
     Route: 030
  3. SORAFENIB [Suspect]
     Indication: RENAL CELL CARCINOMA
     Dosage: 28 day cycle
     Route: 065

REACTIONS (4)
  - Upper gastrointestinal haemorrhage [Fatal]
  - Peritoneal haemorrhage [Fatal]
  - Platelet count decreased [Fatal]
  - Haemoglobin decreased [Fatal]
